FAERS Safety Report 14846221 (Version 1)
Quarter: 2018Q2

REPORT INFORMATION
  Report Type: Spontaneous
  Country: GB (occurrence: GB)
  Receive Date: 20180419
  Receipt Date: 20180419
  Transmission Date: 20180711
  Serious: Yes (Other)
  Sender: FDA-Public Use
  Company Number: None

PATIENT
  Age: 44 Year
  Sex: Male
  Weight: 63 kg

DRUGS (4)
  1. LEVOFOXACINO 500MG [Suspect]
     Active Substance: LEVOFLOXACIN SODIUM
     Indication: PHARYNGITIS
     Dosage: ?          QUANTITY:6 TABLET(S);?
     Route: 048
     Dates: start: 20180323, end: 20180328
  2. VITAMIN D [Concomitant]
     Active Substance: CHOLECALCIFEROL
  3. LEVOFOXACINO 500MG [Suspect]
     Active Substance: LEVOFLOXACIN SODIUM
     Indication: SINUSITIS
     Dosage: ?          QUANTITY:6 TABLET(S);?
     Route: 048
     Dates: start: 20180323, end: 20180328
  4. VITABIOTIC [Concomitant]

REACTIONS (5)
  - Fatigue [None]
  - Hypoaesthesia [None]
  - Paraesthesia [None]
  - Neuropathy peripheral [None]
  - Physical product label issue [None]

NARRATIVE: CASE EVENT DATE: 20180328
